FAERS Safety Report 15323005 (Version 1)
Quarter: 2018Q3

REPORT INFORMATION
  Report Type: Report from Study
  Country: NL (occurrence: NL)
  Receive Date: 20180827
  Receipt Date: 20180827
  Transmission Date: 20181010
  Serious: Yes (Hospitalization)
  Sender: FDA-Public Use
  Company Number: PHHY2017NL123063

PATIENT
  Age: 56 Year
  Sex: Female

DRUGS (3)
  1. SIGNIFOR [Suspect]
     Active Substance: PASIREOTIDE
     Indication: PITUITARY-DEPENDENT CUSHING^S SYNDROME
     Dosage: 1 DF, QMO
     Route: 030
  2. SIGNIFOR [Suspect]
     Active Substance: PASIREOTIDE
     Dosage: 1 DF, QMO
     Route: 030
     Dates: start: 20170720
  3. SIGNIFOR [Suspect]
     Active Substance: PASIREOTIDE
     Dosage: 1 DF, QMO
     Route: 030
     Dates: start: 20180816

REACTIONS (3)
  - Hypoglycaemia [Recovered/Resolved]
  - Product use in unapproved indication [Unknown]
  - Hyperglycaemia [Not Recovered/Not Resolved]

NARRATIVE: CASE EVENT DATE: 20170811
